FAERS Safety Report 6438518-2 (Version None)
Quarter: 2009Q4

REPORT INFORMATION
  Report Type: 
  Country: None (occurrence: None)
  Receive Date: 20091110
  Receipt Date: 20091026
  Transmission Date: 20100525
  Serious: Yes (Hospitalization, Other)
  Sender: FDA-Public Use
  Company Number: CERZ-1001001

PATIENT
  Age: 47 Year
  Sex: Female

DRUGS (3)
  1. CEREZYME [Suspect]
     Indication: GAUCHER'S DISEASE
  2. CEREZYME [Suspect]
     Indication: HEADACHE
  3. DIPIRONE () [Suspect]
     Indication: HEADACHE
     Dates: start: 20091017

REACTIONS (8)
  - ABDOMINAL PAIN [None]
  - CHILLS [None]
  - HEADACHE [None]
  - INFUSION RELATED REACTION [None]
  - MEDICATION ERROR [None]
  - PYREXIA [None]
  - URTICARIA [None]
  - VOMITING [None]
